FAERS Safety Report 16060140 (Version 2)
Quarter: 2019Q2

REPORT INFORMATION
  Report Type: Spontaneous
  Country: US (occurrence: US)
  Receive Date: 20190312
  Receipt Date: 20190409
  Transmission Date: 20190711
  Serious: No
  Sender: FDA-Public Use
  Company Number: US-SHIRE-US201908151

PATIENT
  Sex: Female
  Weight: 81.63 kg

DRUGS (3)
  1. ARTIFICIAL TEARS [Suspect]
     Active Substance: GLYCERIN\HYPROMELLOSES\POLYETHYLENE GLYCOL 400
     Indication: DRY EYE
     Dosage: 1 GTT DROPS, 1X/DAY:QD
     Route: 047
     Dates: start: 20031210
  2. XIIDRA [Suspect]
     Active Substance: LIFITEGRAST
     Indication: DRY EYE
     Dosage: 1 GTT DROPS, 2X/DAY:BID
     Route: 047
     Dates: start: 20181114
  3. RESTASIS [Suspect]
     Active Substance: CYCLOSPORINE
     Indication: DRY EYE
     Dosage: 1 GTT DROPS, 2X/DAY:BID
     Route: 047
     Dates: start: 20050216, end: 20120127

REACTIONS (3)
  - Inappropriate schedule of product administration [Unknown]
  - Instillation site pain [Unknown]
  - Eye disorder [Unknown]

NARRATIVE: CASE EVENT DATE: 2018
